FAERS Safety Report 22300555 (Version 3)
Quarter: 2023Q2

REPORT INFORMATION
  Report Type: Spontaneous
  Country: IN (occurrence: IN)
  Receive Date: 20230509
  Receipt Date: 20230530
  Transmission Date: 20230722
  Serious: Yes (Death, Life-Threatening, Hospitalization)
  Sender: FDA-Public Use
  Company Number: IN-BAUSCH-BL-2023-006897

PATIENT
  Age: 56 Year
  Sex: Male

DRUGS (1)
  1. DEXAMETHASONE [Suspect]
     Active Substance: DEXAMETHASONE
     Indication: COVID-19
     Dosage: GRADUALLY TAPERED
     Route: 042

REACTIONS (2)
  - Disseminated mucormycosis [Fatal]
  - Rhinocerebral mucormycosis [Not Recovered/Not Resolved]
